FAERS Safety Report 8466516-6 (Version None)
Quarter: 2012Q2

REPORT INFORMATION
  Report Type: 
  Country: None (occurrence: None)
  Receive Date: 20120626
  Receipt Date: 20120620
  Transmission Date: 20120825
  Serious: Yes (Hospitalization, Other)
  Sender: FDA-Public Use
  Company Number: FR-ACTELION-A-CH2012-66533

PATIENT
  Sex: Female

DRUGS (4)
  1. KETOPROFEN [Suspect]
     Dosage: UNK
     Dates: start: 20120301, end: 20120501
  2. TRACLEER [Suspect]
     Indication: DIGITAL ULCER
     Dosage: 125 MG, BID
     Route: 048
     Dates: end: 20120521
  3. CYCLOPHOSPHAMIDE [Concomitant]
  4. TRACLEER [Suspect]
     Dosage: 62.5 MG, BID
     Route: 048
     Dates: start: 20110421

REACTIONS (6)
  - PYREXIA [None]
  - C-REACTIVE PROTEIN INCREASED [None]
  - VIRAL INFECTION [None]
  - CYTOLYTIC HEPATITIS [None]
  - ASPARTATE AMINOTRANSFERASE INCREASED [None]
  - ALANINE AMINOTRANSFERASE INCREASED [None]
